FAERS Safety Report 9574977 (Version 2)
Quarter: 2014Q1

REPORT INFORMATION
  Report Type: Spontaneous
  Country: GB (occurrence: GB)
  Receive Date: 20131001
  Receipt Date: 20140127
  Transmission Date: 20141002
  Serious: Yes (Hospitalization)
  Sender: FDA-Public Use
  Company Number: PHHY2013GB106192

PATIENT
  Age: 99 Year
  Sex: Female
  Weight: 48.1 kg

DRUGS (13)
  1. BENDROFLUMETHIAZIDE [Suspect]
     Indication: HYPERTENSION
     Dosage: 2.5 MG, QD
     Route: 048
     Dates: end: 20130910
  2. LANSOPRAZOLE [Suspect]
     Indication: GASTROOESOPHAGEAL REFLUX DISEASE
     Dosage: 15 MG, BID
     Route: 048
     Dates: end: 20130910
  3. ALENDRONIC ACID [Concomitant]
     Dosage: 70 MG, QW
     Route: 048
  4. CALCICHEW D3 [Concomitant]
     Dosage: 1 DF, BID
     Route: 048
  5. CLOPIDOGREL [Concomitant]
     Dosage: 75 MG, QD
     Route: 048
  6. DOCUSATE [Concomitant]
     Dosage: 200 MG, BID
     Route: 048
  7. HYPROMELLOSE [Concomitant]
     Dosage: 1 DROP IN BOTH EYES AT NIGHT.
     Route: 047
  8. LACRI-LUBE [Concomitant]
     Route: 047
  9. LEVOTHYROXINE [Concomitant]
     Dosage: 150 MG, QD
     Route: 048
  10. PARACETAMOL [Concomitant]
     Indication: PAIN
     Dosage: 1 G, QID WHEN REQUIRED
     Route: 048
  11. SANDO K [Concomitant]
     Dosage: 1 DF, TID
     Route: 048
  12. SENNA [Concomitant]
     Dosage: 15 MG, QD AT NIGHT
     Route: 048
  13. SIMVASTATIN [Concomitant]
     Dosage: 10 MG, QD AT NIGHT

REACTIONS (4)
  - Syncope [Recovering/Resolving]
  - Electrolyte imbalance [Recovering/Resolving]
  - Hyponatraemia [Recovering/Resolving]
  - Hypomagnesaemia [Recovering/Resolving]
